FAERS Safety Report 7680641-9 (Version None)
Quarter: 2011Q3

REPORT INFORMATION
  Report Type: 
  Country: None (occurrence: None)
  Receive Date: 20110812
  Receipt Date: 20110804
  Transmission Date: 20111222
  Serious: Yes (Death, Hospitalization)
  Sender: FDA-Public Use
  Company Number: HU-SANOFI-AVENTIS-2011SA043745

PATIENT
  Age: 82 Year
  Sex: Female
  Weight: 84 kg

DRUGS (7)
  1. FUROSEMIDE [Concomitant]
  2. DOXAZOSIN MESYLATE [Concomitant]
  3. ACENOCOUMAROL [Concomitant]
     Dosage: 14MG WEEKLY
  4. ENALAPRIL MALEATE [Concomitant]
  5. DRONEDARONE HCL [Suspect]
     Indication: ATRIAL FIBRILLATION
     Route: 048
     Dates: start: 20101106, end: 20110515
  6. CARVEDILOL [Concomitant]
  7. SIMVASTATIN [Concomitant]

REACTIONS (2)
  - CARDIAC DEATH [None]
  - CARDIAC FAILURE [None]
